FAERS Safety Report 9189824 (Version 2)
Quarter: 2013Q2

REPORT INFORMATION
  Report Type: Spontaneous
  Country: US (occurrence: US)
  Receive Date: 20130326
  Receipt Date: 20130618
  Transmission Date: 20140414
  Serious: Yes (Hospitalization, Congenital Anomaly, Other)
  Sender: FDA-Public Use
  Company Number: US-PFIZER INC-2013094680

PATIENT
  Sex: Female

DRUGS (4)
  1. ZOLOFT [Suspect]
     Indication: DEPRESSION
     Dosage: UNK
     Route: 064
     Dates: start: 2008
  2. PRENATAL VITAMINS [Concomitant]
     Dosage: UNK
     Route: 064
  3. DEPO-PROVERA [Concomitant]
     Dosage: UNK
     Route: 064
  4. PERCOCET [Concomitant]
     Dosage: UNK
     Route: 064

REACTIONS (3)
  - Maternal exposure during pregnancy [Unknown]
  - Talipes [Unknown]
  - Supraventricular tachycardia [Unknown]
